FAERS Safety Report 9392940 (Version 1)
Quarter: 2013Q3

REPORT INFORMATION
  Report Type: Report from Study
  Country: US (occurrence: US)
  Receive Date: 20130710
  Receipt Date: 20130710
  Transmission Date: 20140515
  Serious: No
  Sender: FDA-Public Use
  Company Number: US-009507513-1306USA010199

PATIENT
  Age: 16 Year
  Sex: Female
  Weight: 66.71 kg

DRUGS (1)
  1. IMPLANON [Suspect]
     Dosage: UNK
     Dates: start: 20120822, end: 20130620

REACTIONS (3)
  - Haemorrhage [Unknown]
  - Menstruation irregular [Unknown]
  - Device difficult to use [Unknown]
